FAERS Safety Report 6088421-5 (Version None)
Quarter: 2009Q1

REPORT INFORMATION
  Report Type: 
  Country: None (occurrence: None)
  Receive Date: 20090224
  Receipt Date: 20090212
  Transmission Date: 20090719
  Serious: Yes (Other)
  Sender: FDA-Public Use
  Company Number: DE-PFIZER INC-2009168576

PATIENT

DRUGS (1)
  1. ZYVOXID [Suspect]

REACTIONS (1)
  - TRANSIENT ISCHAEMIC ATTACK [None]
